FAERS Safety Report 4554469-2 (Version None)
Quarter: 2004Q4

REPORT INFORMATION
  Report Type: 
  Country: None (occurrence: None)
  Receive Date: 20041222
  Receipt Date: 20041111
  Transmission Date: 20050328
  Serious: Yes (Hospitalization, Other)
  Sender: FDA-Public Use
  Company Number: 2004089935

PATIENT
  Age: 44 Year
  Sex: Male

DRUGS (2)
  1. VFEND [Suspect]
     Indication: FUNGAL INFECTION
     Dosage: INTRAVENOUS
     Route: 036
     Dates: start: 20040101, end: 20041001
  2. CASPOFUNGIN (CASPOFUNGIN) [Concomitant]

REACTIONS (2)
  - ATRIOVENTRICULAR BLOCK [None]
  - FUNGAL INFECTION [None]
